FAERS Safety Report 6979218-X (Version None)
Quarter: 2010Q3

REPORT INFORMATION
  Report Type: 
  Country: None (occurrence: None)
  Receive Date: 20100913
  Receipt Date: 20100831
  Transmission Date: 20110219
  Serious: Yes (Life-Threatening, Hospitalization)
  Sender: FDA-Public Use
  Company Number: US-ELI_LILLY_AND_COMPANY-US201004004262

PATIENT
  Sex: Female

DRUGS (3)
  1. FORTEO [Suspect]
     Indication: OSTEOPOROSIS
     Dosage: 20 UG, DAILY (1/D)
     Dates: start: 20100304, end: 20100308
  2. FORTEO [Suspect]
     Dosage: 20 UG, DAILY (1/D)
     Dates: start: 20100322
  3. FORTEO [Suspect]
     Dosage: 20 UG, DAILY (1/D)

REACTIONS (7)
  - AMNESIA [None]
  - BLOOD CALCIUM INCREASED [None]
  - FATIGUE [None]
  - GASTROENTERITIS VIRAL [None]
  - INCORRECT DRUG ADMINISTRATION DURATION [None]
  - MUSCLE SPASMS [None]
  - PAIN [None]
